FAERS Safety Report 10149763 (Version 1)
Quarter: 2014Q2

REPORT INFORMATION
  Report Type: Spontaneous
  Country: US (occurrence: None)
  Receive Date: 20140501
  Receipt Date: 20140501
  Transmission Date: 20141212
  Serious: Yes (Hospitalization)
  Sender: FDA-Public Use
  Company Number: None

PATIENT
  Age: 26 Year
  Sex: Female

DRUGS (1)
  1. ACETAMINOPHEN [Suspect]
     Indication: SUICIDE ATTEMPT
     Route: 048
     Dates: start: 20130802, end: 20130802

REACTIONS (3)
  - Overdose [None]
  - Intentional self-injury [None]
  - Marital problem [None]
